FAERS Safety Report 10973314 (Version 3)
Quarter: 2015Q2

REPORT INFORMATION
  Report Type: Report from Study
  Country: ES (occurrence: ES)
  Receive Date: 20150401
  Receipt Date: 20150407
  Transmission Date: 20150821
  Serious: Yes (Hospitalization)
  Sender: FDA-Public Use
  Company Number: ES-009507513-1503ESP010835

PATIENT
  Age: 60 Year
  Sex: Male
  Weight: 82 kg

DRUGS (8)
  1. DEXAMETHASONE. [Suspect]
     Active Substance: DEXAMETHASONE
     Dosage: 40 MG DAILY, ON DAYS 1, 8, 15 AND 22 OF EACH 28 DAYS CYCLE
     Route: 048
     Dates: start: 20150309, end: 20150309
  2. LENALIDOMIDE [Suspect]
     Active Substance: LENALIDOMIDE
     Indication: PLASMA CELL MYELOMA
     Dosage: 25 MG DAILY, ON DAYS 1-21 OF EACH 28 DAYS CYCLE
     Route: 048
     Dates: start: 20150119, end: 20150120
  3. LENALIDOMIDE [Suspect]
     Active Substance: LENALIDOMIDE
     Dosage: 25 MG DAILY, ON DAYS 1-21 OF EACH 28 DAYS CYCLE
     Route: 048
     Dates: start: 20150216, end: 20150216
  4. ADIRO [Concomitant]
     Active Substance: ASPIRIN
     Indication: PROPHYLAXIS
     Dosage: 100 G, QD
     Route: 048
     Dates: start: 20150119
  5. PEMBROLIZUMAB. [Suspect]
     Active Substance: PEMBROLIZUMAB
     Indication: PLASMA CELL MYELOMA
     Dosage: 2 MG/KG, EVERY TWO WEEKS ON DAY 1 AND 15 OF 28 DAYS CYCLE
     Route: 042
     Dates: start: 20150119, end: 20150216
  6. PEMBROLIZUMAB. [Suspect]
     Active Substance: PEMBROLIZUMAB
     Dosage: 2 MG/KG, EVERY TWO WEEKS ON DAY 1 AND 15 OF 28 DAYS CYCLE
     Route: 042
     Dates: start: 20150302, end: 20150302
  7. PEMBROLIZUMAB. [Suspect]
     Active Substance: PEMBROLIZUMAB
     Dosage: 2 MG/KG, EVERY TWO WEEKS ON DAY 1 AND 15 OF 28 DAYS CYCLE
     Route: 042
     Dates: start: 20150323, end: 20150323
  8. DEXAMETHASONE. [Suspect]
     Active Substance: DEXAMETHASONE
     Indication: PLASMA CELL MYELOMA
     Dosage: 40 MG DAILY , ON DAYS 1, 8, 15 AND 22 OF EACH 28 DAYS CYCLE
     Route: 048
     Dates: start: 20150119, end: 20150302

REACTIONS (1)
  - Upper respiratory tract infection [Recovered/Resolved]

NARRATIVE: CASE EVENT DATE: 20150316
